FAERS Safety Report 8397911-1 (Version None)
Quarter: 2012Q2

REPORT INFORMATION
  Report Type: 
  Country: None (occurrence: None)
  Receive Date: 20120531
  Receipt Date: 20120524
  Transmission Date: 20120825
  Serious: Yes (Other)
  Sender: FDA-Public Use
  Company Number: PHHY2012US045047

PATIENT
  Age: 32 Year
  Sex: Male

DRUGS (3)
  1. CLOZAPINE [Suspect]
     Indication: SCHIZOAFFECTIVE DISORDER DEPRESSIVE TYPE
     Dosage: UNK
  2. CLOZAPINE [Suspect]
     Dosage: 150 MG, DAILY
  3. CLOZAPINE [Suspect]
     Dosage: 800 MG, DAILY

REACTIONS (5)
  - ENURESIS [None]
  - BACTERIAL DISEASE CARRIER [None]
  - STRESS [None]
  - MICTURITION URGENCY [None]
  - URINARY TRACT INFECTION [None]
